FAERS Safety Report 4577887-5 (Version None)
Quarter: 2005Q1

REPORT INFORMATION
  Report Type: 
  Country: None (occurrence: None)
  Receive Date: 20050209
  Receipt Date: 20050125
  Transmission Date: 20050727
  Serious: Yes (Hospitalization)
  Sender: FDA-Public Use
  Company Number: JP_041105138

PATIENT
  Age: 65 Year
  Sex: Male

DRUGS (5)
  1. VINCRISTINE SULFATE [Suspect]
     Indication: DIFFUSE LARGE B-CELL LYMPHOMA
  2. VINCRISTINE SULFATE [Suspect]
     Indication: THYROID NEOPLASM
  3. CYCLOPHOSPHAMIDE [Concomitant]
  4. DOXORUBICIN [Concomitant]
  5. PREDNISOLONE [Concomitant]

REACTIONS (6)
  - COUGH [None]
  - FIBROSIS [None]
  - OESOPHAGEAL STENOSIS [None]
  - ORAL INTAKE REDUCED [None]
  - THYROID DISORDER [None]
  - TRACHEO-OESOPHAGEAL FISTULA [None]
